FAERS Safety Report 9583818 (Version 1)
Quarter: 2013Q4

REPORT INFORMATION
  Report Type: Spontaneous
  Country: US (occurrence: US)
  Receive Date: 20131002
  Receipt Date: 20131002
  Transmission Date: 20140711
  Serious: No
  Sender: FDA-Public Use
  Company Number: US-AMGEN-USASP2013049804

PATIENT
  Age: 51 Year
  Sex: Female
  Weight: 82 kg

DRUGS (16)
  1. ENBREL [Suspect]
     Indication: PRODUCT USED FOR UNKNOWN INDICATION
     Dosage: 50 MG/ML, QWK
     Route: 058
  2. SULFASALAZIN [Concomitant]
     Dosage: 500 MG, UNK
  3. HYDROXYCHLOROQUINE [Concomitant]
     Dosage: 200 MG, UNK
  4. CENTRUM SILVER                     /06011601/ [Concomitant]
     Dosage: UNK
  5. ESTRADIOL [Concomitant]
     Dosage: 2 MG, UNK
  6. LEVOCETIRIZIN ABZ [Concomitant]
     Dosage: 5 MG, UNK
  7. LEVOTHYROXINE [Concomitant]
     Dosage: 100 MUG, UNK
  8. LEXAPRO [Concomitant]
     Dosage: 10 MG, UNK
  9. NASONEX [Concomitant]
     Dosage: 50 MUG, UNK
  10. PATADAY [Concomitant]
     Dosage: 0.2 %, UNK
  11. PROMETRIUM                         /00110701/ [Concomitant]
     Dosage: 100 MG, UNK
  12. SUDAFED                            /00076302/ [Concomitant]
     Dosage: 120 MG, UNK
  13. SULFASALAZINE [Concomitant]
     Dosage: 500 MG, UNK
  14. VITAMIN D3 [Concomitant]
     Dosage: 5000 UNIT, UNK
  15. XYZAL [Concomitant]
     Dosage: 5 MG, UNK
  16. PREDNISONE [Concomitant]
     Dosage: 1 MG, UNK

REACTIONS (6)
  - Injection site mass [Unknown]
  - Injection site reaction [Unknown]
  - Injection site erythema [Unknown]
  - Injection site swelling [Unknown]
  - Injection site inflammation [Unknown]
  - Injection site warmth [Unknown]
